FAERS Safety Report 9842698 (Version 5)
Quarter: 2017Q1

REPORT INFORMATION
  Report Type: Spontaneous
  Country: US (occurrence: US)
  Receive Date: 20140124
  Receipt Date: 20170202
  Transmission Date: 20170429
  Serious: Yes (Other)
  Sender: FDA-Public Use
  Company Number: US-PFIZER INC-2014021775

PATIENT
  Age: 79 Year
  Sex: Female

DRUGS (26)
  1. ESTRACE [Concomitant]
     Active Substance: ESTRADIOL
     Dosage: 1 G, 2X/WEEK (MONDAY AND THURSDAY)
     Route: 067
     Dates: start: 20161028
  2. TOFRANIL [Concomitant]
     Active Substance: IMIPRAMINE HYDROCHLORIDE
     Dosage: 1 DF, 1 CAPSULE EVERY MORNING
     Route: 048
     Dates: start: 20170125
  3. TEMOVATE [Concomitant]
     Active Substance: CLOBETASOL PROPIONATE
     Dosage: 0.05 %, 2X/WEEK
     Route: 061
     Dates: start: 20160317
  4. LOTRISONE [Concomitant]
     Active Substance: BETAMETHASONE DIPROPIONATE\CLOTRIMAZOLE
     Dosage: UNK, APPLY THIN COAT TO AFFECTED AREA TWICE A DAY FOR 2 WEEKS
     Dates: start: 20141103
  5. LYRICA [Suspect]
     Active Substance: PREGABALIN
     Dosage: UNK, 2X/DAY
     Route: 048
  6. LYRICA [Suspect]
     Active Substance: PREGABALIN
     Dosage: UNK, 1X/DAY
     Route: 048
  7. VICODIN [Concomitant]
     Active Substance: ACETAMINOPHEN\HYDROCODONE BITARTRATE
     Dosage: UNK
  8. AMBIEN [Concomitant]
     Active Substance: ZOLPIDEM TARTRATE
     Indication: INSOMNIA
     Dosage: 1 DF, AS NEEDED (NIGHTLY)
     Route: 048
     Dates: start: 20160921
  9. NORCO [Concomitant]
     Active Substance: ACETAMINOPHEN\HYDROCODONE BITARTRATE
     Indication: PAIN
     Dosage: 0.5 TABLET EVERY SIX HOURS AS NEEDED
     Route: 048
     Dates: start: 20170125, end: 2017
  10. DELTASONE [Concomitant]
     Active Substance: PREDNISONE
     Dosage: 2 TABLETS, ONCE DAILY (FOR 2 DAYS)
     Route: 048
     Dates: start: 20160120
  11. DELTASONE [Concomitant]
     Active Substance: PREDNISONE
     Dosage: 1 TABLET, ONCE DAILY (FOR 2 DAYS)
     Route: 048
  12. SYNTHROID [Concomitant]
     Active Substance: LEVOTHYROXINE SODIUM
     Dosage: 1 TABLET ONCE DAILY ON AN EMPTY STOMACH
     Route: 048
     Dates: start: 20161019, end: 20170119
  13. NORVASC [Concomitant]
     Active Substance: AMLODIPINE BESYLATE
     Dosage: 1 DF, ONCE DAILY
     Route: 048
     Dates: start: 20161019
  14. VITAMIN B12 [Concomitant]
     Active Substance: CYANOCOBALAMIN
     Dosage: UNK
  15. PREVACID [Concomitant]
     Active Substance: LANSOPRAZOLE
     Dosage: UNK
  16. XANAX [Concomitant]
     Active Substance: ALPRAZOLAM
     Dosage: 1 TABLET ONCE DAILY AS NEEDED, USED RARELY ONLY AND NOT TO BE TAKEN WITH HYDROCODONE- ACETAMINOPHEN
     Route: 048
     Dates: start: 20161019
  17. FLONASE [Concomitant]
     Active Substance: FLUTICASONE PROPIONATE
     Dosage: 2 SPRAYS, IN EACH NOSTRIL, ONCE DAILY, SHAKE WELL AND INHALE
     Route: 055
     Dates: start: 20161019, end: 20170125
  18. LYRICA [Suspect]
     Active Substance: PREGABALIN
     Dosage: 75 MG, 2X/DAY
     Route: 048
  19. MOBIC [Concomitant]
     Active Substance: MELOXICAM
     Dosage: 1 TABLET, ONCE DAILY
     Route: 048
     Dates: start: 20160921
  20. PRILOSEC [Concomitant]
     Active Substance: OMEPRAZOLE MAGNESIUM
     Dosage: 1 TABLET ONCE DAILY
     Route: 048
     Dates: start: 20161019
  21. TRIAVIL [Concomitant]
     Active Substance: AMITRIPTYLINE HYDROCHLORIDE\PERPHENAZINE
     Dosage: 1 TABLET, ONCE DAILY
     Route: 048
     Dates: start: 20170119
  22. ASA [Concomitant]
     Active Substance: ASPIRIN
     Dosage: 81 MG, 1X/DAY
     Route: 048
  23. TOFRANIL [Concomitant]
     Active Substance: IMIPRAMINE HYDROCHLORIDE
     Dosage: 3DF, 3 CAPSULES EVERY BEDTIME
     Route: 048
     Dates: start: 20170125
  24. BENTYL [Concomitant]
     Active Substance: DICYCLOMINE HYDROCHLORIDE
     Dosage: 1 DF, EVERY MORNING AS NEEDED
     Route: 048
     Dates: start: 20170119
  25. ATIVAN [Concomitant]
     Active Substance: LORAZEPAM
     Dosage: UNK
  26. DELTASONE [Concomitant]
     Active Substance: PREDNISONE
     Dosage: 1/2 TABLET ONCE A DAY (FOR 4 DAYS)
     Route: 048

REACTIONS (7)
  - Musculoskeletal discomfort [Unknown]
  - Cataract [Unknown]
  - Dysphonia [Unknown]
  - Blindness [Unknown]
  - Gait disturbance [Unknown]
  - Vascular compression [Unknown]
  - Somnolence [Unknown]
